FAERS Safety Report 10013575 (Version 2)
Quarter: 2014Q1

REPORT INFORMATION
  Report Type: Spontaneous
  Country: PL (occurrence: PL)
  Receive Date: 20140315
  Receipt Date: 20140327
  Transmission Date: 20141002
  Serious: Yes (Hospitalization, Other)
  Sender: FDA-Public Use
  Company Number: PL-AMGEN-POLSP2014016082

PATIENT
  Age: 85 Year
  Sex: Male
  Weight: 58 kg

DRUGS (10)
  1. ARANESP [Suspect]
     Indication: NEPHROGENIC ANAEMIA
     Dosage: 20 MUG, Q2WK
     Route: 058
     Dates: start: 20130507
  2. AMLOZEK [Concomitant]
     Indication: HYPERTENSION
     Dosage: 2.5 MG, QD
     Route: 048
  3. DOXAR                              /00639301/ [Concomitant]
     Indication: HYPERTENSION
     Dosage: 2 MG, QD
     Route: 048
  4. SIMVASTEROL [Concomitant]
     Indication: HYPERLIPIDAEMIA
     Dosage: 20 MG, QD
     Route: 048
  5. ACARD [Concomitant]
     Indication: PROPHYLAXIS
     Dosage: UNK UNK, QD
     Route: 048
  6. PROSCAR [Concomitant]
     Indication: BENIGN PROSTATIC HYPERPLASIA
     Dosage: UNK UNK, QD
     Route: 048
  7. CALPEROS                           /00944201/ [Concomitant]
     Indication: BLOOD PHOSPHORUS
     Dosage: UNK UNK, BID
     Route: 048
  8. ALFADIOL [Concomitant]
     Indication: HYPERPARATHYROIDISM SECONDARY
     Dosage: UNK UNK, QD
     Route: 048
  9. ALKALA T [Concomitant]
     Indication: METABOLIC ACIDOSIS
     Dosage: UNK UNK, BID
     Route: 048
  10. ENARENAL [Concomitant]
     Indication: HYPERTENSION
     Dosage: 5 MG, BID
     Route: 048

REACTIONS (5)
  - Haemoglobin decreased [Not Recovered/Not Resolved]
  - Bone marrow myelogram abnormal [Unknown]
  - Aplasia pure red cell [Unknown]
  - Drug ineffective [Unknown]
  - Gastritis [Unknown]
